FAERS Safety Report 9902780 (Version 1)
Quarter: 2014Q1

REPORT INFORMATION
  Report Type: Spontaneous
  Country: GR (occurrence: GR)
  Receive Date: 20140217
  Receipt Date: 20140217
  Transmission Date: 20141002
  Serious: Yes (Other)
  Sender: FDA-Public Use
  Company Number: PHHY2014GR018077

PATIENT
  Age: 80 Year
  Sex: Female

DRUGS (5)
  1. COPALIA HCT [Suspect]
     Dosage: (320 MG VAL/ 10 MG AMLO/ 25 MG HCT)
  2. NEBICUR [Concomitant]
     Dosage: UNK UKN, UNK
  3. FISIOTENS [Concomitant]
     Dosage: UNK UKN, UNK
  4. DIAMICRON [Concomitant]
     Dosage: UNK UKN, UNK
  5. GLUCOPHAGE [Concomitant]
     Dosage: UNK UKN, UNK

REACTIONS (2)
  - Serum ferritin decreased [Unknown]
  - Haematocrit decreased [Unknown]
